FAERS Safety Report 9773370 (Version 1)
Quarter: 2013Q4

REPORT INFORMATION
  Report Type: Spontaneous
  Country: FR (occurrence: FR)
  Receive Date: 20131219
  Receipt Date: 20131219
  Transmission Date: 20140711
  Serious: Yes (Life-Threatening, Hospitalization)
  Sender: FDA-Public Use
  Company Number: FR-ASTRAZENECA-2013SE91675

PATIENT
  Age: 48 Year
  Sex: Female

DRUGS (5)
  1. ZOMIG [Suspect]
     Indication: HEADACHE
     Route: 048
     Dates: start: 20131120
  2. ZOMIG [Suspect]
     Indication: MIGRAINE
     Route: 048
     Dates: start: 20131120
  3. ZOMIG [Suspect]
     Indication: HEADACHE
     Route: 048
     Dates: start: 20131121
  4. ZOMIG [Suspect]
     Indication: MIGRAINE
     Route: 048
     Dates: start: 20131121
  5. MIGPRIV [Suspect]
     Indication: HEADACHE
     Route: 048
     Dates: start: 20131121, end: 20131121

REACTIONS (3)
  - Carotid artery dissection [Not Recovered/Not Resolved]
  - Blood pressure increased [Unknown]
  - Nausea [Unknown]
